FAERS Safety Report 18781981 (Version 1)
Quarter: 2021Q1

REPORT INFORMATION
  Report Type: Spontaneous
  Country: US (occurrence: US)
  Receive Date: 20210125
  Receipt Date: 20210125
  Transmission Date: 20210419
  Serious: No
  Sender: FDA-Public Use
  Company Number: US-ALLERGAN-2013383US

PATIENT
  Sex: Female

DRUGS (4)
  1. REFRESH TEARS [Concomitant]
     Active Substance: CARBOXYMETHYLCELLULOSE SODIUM
     Indication: DRY EYE
     Dosage: 2 GTT, PRN
     Route: 047
     Dates: start: 201806
  2. FLONASE [Concomitant]
     Active Substance: FLUTICASONE PROPIONATE
     Indication: EUSTACHIAN TUBE DYSFUNCTION
     Dosage: 2 DF, QD
  3. RESTASIS [Suspect]
     Active Substance: CYCLOSPORINE
     Indication: DRY EYE
     Dosage: 2 GTT, BID
     Route: 047
     Dates: start: 20200207
  4. A?REDS [Concomitant]
     Indication: MACULAR DEGENERATION
     Dosage: 1 DF, QD

REACTIONS (3)
  - Product physical issue [Unknown]
  - Multiple use of single-use product [Unknown]
  - Product delivery mechanism issue [Unknown]
